FAERS Safety Report 8418150-1 (Version None)
Quarter: 2012Q2

REPORT INFORMATION
  Report Type: 
  Country: None (occurrence: None)
  Receive Date: 20120607
  Receipt Date: 20120530
  Transmission Date: 20120825
  Serious: Yes (Hospitalization)
  Sender: FDA-Public Use
  Company Number: US-BAYER-2012-014276

PATIENT
  Age: 32 Year
  Sex: Female

DRUGS (18)
  1. TRAZODONE HCL [Concomitant]
     Dosage: 50 MG, TAKE ONE-HALF TO 1 TABLET, HS
     Route: 048
     Dates: start: 20100223
  2. YAZ [Suspect]
  3. LORTAB [Concomitant]
     Indication: PAIN
     Dosage: 5MG/500 MG EVERY 6 HOURS, AS NEEDED
     Dates: start: 20100219
  4. AZITHROMYCIN [Concomitant]
     Dosage: 250 MG, 6-PAK TAKE TWO TABLETS AT ONE TODAY, THEN TAKE ONE TABLET DAILY
     Route: 048
     Dates: start: 20100209
  5. CLOTRIMAZOLE-BETAMETHASONE CREAM [Concomitant]
     Dosage: APPLY TWICE DAILY
     Route: 061
     Dates: start: 20100122
  6. YAZ [Suspect]
     Indication: CONTRACEPTION
     Dosage: UNK
     Dates: start: 20081024, end: 20100413
  7. MACROBID [Concomitant]
     Dosage: 100 MG CAP, 1 TABLET TWICE DAILY
     Route: 048
     Dates: start: 20100122, end: 20100219
  8. LEXAPRO [Concomitant]
     Dosage: 20 MG, 1 TABLET EVERY DAY
     Route: 048
     Dates: start: 20090827
  9. PERCOCET [Concomitant]
     Dosage: 10 MG/325 MG TAKE ONE TABLET BY MOUTH EVERY 6 HOURS
     Route: 048
     Dates: start: 20100227
  10. YAZ [Suspect]
     Indication: PREMENSTRUAL SYNDROME
  11. FLUTICASONE FUROATE [Concomitant]
     Dosage: 2 SPRAY IN EACH NOSTRIL EVERY MORNING AND EVERY EVENING FOR 7 DAYS, THEN EVERY EVENING ONLY
     Route: 045
     Dates: start: 20100122
  12. PROMETHAZINE [Concomitant]
     Indication: NAUSEA
     Dosage: 25 MG, ONE TABLET UP TO THREE TIMES DAILY, PRN
     Route: 048
     Dates: start: 20100202
  13. YAZ [Suspect]
     Indication: ACNE
  14. MULTI-VITAMIN [Concomitant]
     Dosage: UNK
     Dates: start: 20100303
  15. DARVOCET [Concomitant]
     Indication: PAIN
     Dosage: TAKE ON TABLET UP TO THREE TIMES DAILY, PRN
     Route: 048
     Dates: start: 20100202
  16. SULFAMETHOXAZOLE AND TRIMETHOPRIM [Concomitant]
     Dosage: ONE TABLET TWICE DAILY
     Dates: start: 20100122
  17. SYNTHROID [Concomitant]
     Dosage: 0.05 MG, TAKE ONE-HALF TABLET EVERY MORNING FOR 3 DAYS THEN 1 TABLET EVERY MORNING
     Dates: start: 20100223
  18. LORTAB [Concomitant]
     Indication: BILIARY COLIC

REACTIONS (5)
  - CHOLECYSTITIS CHRONIC [None]
  - ABDOMINAL PAIN UPPER [None]
  - VOMITING [None]
  - CHOLELITHIASIS [None]
  - NAUSEA [None]
